FAERS Safety Report 21506253 (Version 2)
Quarter: 2022Q4

REPORT INFORMATION
  Report Type: Other
  Country: IT (occurrence: None)
  Receive Date: 20221026
  Receipt Date: 20221031
  Transmission Date: 20230113
  Serious: Yes (Hospitalization, Other)
  Sender: FDA-Public Use
  Company Number: IT-ROCHE-2616450

PATIENT
  Age: 68 Year
  Sex: Male

DRUGS (2)
  1. OBINUTUZUMAB [Suspect]
     Active Substance: OBINUTUZUMAB
     Indication: Follicular lymphoma
     Dosage: ON 16/MAR/2020, HE RECEIVED LAST DOSE INTRAVENOUS OBINUTUZUMAB 1000 MG PRIOR TO THE ONSET OF ADVERSE
     Route: 042
     Dates: start: 20200115
  2. CRESEMBA [Concomitant]
     Active Substance: ISAVUCONAZONIUM SULFATE

REACTIONS (8)
  - Neutropenia [Recovered/Resolved]
  - Leukopenia [Recovered/Resolved]
  - Off label use [Unknown]
  - Musculoskeletal pain [Recovered/Resolved]
  - COVID-19 [Unknown]
  - Pyrexia [Recovered/Resolved with Sequelae]
  - Pleural thickening [Recovered/Resolved with Sequelae]
  - Transaminases increased [Unknown]

NARRATIVE: CASE EVENT DATE: 20200414
